FAERS Safety Report 12632699 (Version 2)
Quarter: 2016Q3

REPORT INFORMATION
  Report Type: Spontaneous
  Country: US (occurrence: US)
  Receive Date: 20160808
  Receipt Date: 20160808
  Transmission Date: 20161109
  Serious: No
  Sender: FDA-Public Use
  Company Number: US-BEH-2015056565

PATIENT
  Sex: Female
  Weight: 66 kg

DRUGS (27)
  1. LEVAQUIN [Concomitant]
     Active Substance: LEVOFLOXACIN
  2. DIPHENHYDRAMINE. [Concomitant]
     Active Substance: DIPHENHYDRAMINE
  3. LANTUS [Concomitant]
     Active Substance: INSULIN GLARGINE
     Dosage: 100 UNITS/ML VIAL
  4. ALBUTEROL. [Concomitant]
     Active Substance: ALBUTEROL
     Dosage: SOLUTION
  5. PREDNISONE. [Concomitant]
     Active Substance: PREDNISONE
  6. PROAIR HFA [Concomitant]
     Active Substance: ALBUTEROL SULFATE
     Dosage: INHALER
  7. CITRACAL+D [Concomitant]
     Dosage: CAPLET
  8. POTASSIUM CHLORIDE. [Concomitant]
     Active Substance: POTASSIUM CHLORIDE
  9. PANTOPRAZOLE SODIUM. [Concomitant]
     Active Substance: PANTOPRAZOLE SODIUM
     Dosage: DR
  10. CLOTRIMAZOLE. [Concomitant]
     Active Substance: CLOTRIMAZOLE
     Dosage: TROCHE
  11. GABAPENTIN. [Concomitant]
     Active Substance: GABAPENTIN
  12. METHOCARBAMOL. [Concomitant]
     Active Substance: METHOCARBAMOL
  13. LIDOCAINE. [Concomitant]
     Active Substance: LIDOCAINE
  14. FLUTICASONE PROP [Concomitant]
     Dosage: SPRAY
  15. LUMIGAN [Concomitant]
     Active Substance: BIMATOPROST
  16. EPI-PEN AUTOINJECTOR [Concomitant]
  17. DULCOLAX EC [Concomitant]
  18. ASPIRIN EC [Concomitant]
     Active Substance: ASPIRIN
  19. VICODIN [Concomitant]
     Active Substance: ACETAMINOPHEN\HYDROCODONE BITARTRATE
     Dosage: 5/500 TABLET
  20. CHLORPHENIRAMINE. [Concomitant]
     Active Substance: CHLORPHENIRAMINE
  21. MIRALAX [Concomitant]
     Active Substance: POLYETHYLENE GLYCOL 3350
  22. BUDESONIDE. [Concomitant]
     Active Substance: BUDESONIDE
  23. HIZENTRA [Suspect]
     Active Substance: HUMAN IMMUNOGLOBULIN G
     Indication: IMMUNODEFICIENCY COMMON VARIABLE
     Route: 058
     Dates: start: 20101027
  24. RANITIDINE HCL [Concomitant]
     Active Substance: RANITIDINE HYDROCHLORIDE
     Dosage: 25 MG/ML VIAL
  25. LOSARTAN POTASSIUM. [Concomitant]
     Active Substance: LOSARTAN POTASSIUM
  26. CHLORPHENIRAMINE ER [Concomitant]
  27. AFRIN [Concomitant]
     Active Substance: OXYMETAZOLINE

REACTIONS (1)
  - Nocturnal dyspnoea [Unknown]
